FAERS Safety Report 5909925-9 (Version None)
Quarter: 2008Q4

REPORT INFORMATION
  Report Type: 
  Country: None (occurrence: None)
  Receive Date: 20081006
  Receipt Date: 20081006
  Transmission Date: 20090506
  Serious: Yes (Hospitalization)
  Sender: FDA-Public Use
  Company Number: None

PATIENT
  Sex: Female
  Weight: 145.24 kg

DRUGS (1)
  1. ARIMIDEX [Suspect]
     Dosage: 15 MG
     Dates: end: 20080929

REACTIONS (5)
  - BACK PAIN [None]
  - BACTERIAL INFECTION [None]
  - BLOOD CULTURE POSITIVE [None]
  - DYSPNOEA [None]
  - PLEURAL EFFUSION [None]
